FAERS Safety Report 7294762-6 (Version None)
Quarter: 2011Q1

REPORT INFORMATION
  Report Type: 
  Country: None (occurrence: None)
  Receive Date: 20110216
  Receipt Date: 20110208
  Transmission Date: 20110831
  Serious: Yes (Hospitalization)
  Sender: FDA-Public Use
  Company Number: US-US-EMD SERONO, INC.-7013649

PATIENT
  Sex: Female
  Weight: 88 kg

DRUGS (3)
  1. REBIF [Suspect]
     Indication: MULTIPLE SCLEROSIS
     Route: 058
     Dates: start: 20040401
  2. UNSPECIFIED MEDICATION [Concomitant]
  3. REBIF [Suspect]
     Route: 058

REACTIONS (5)
  - UPPER LIMB FRACTURE [None]
  - FALL [None]
  - PNEUMONIA [None]
  - MONARTHRITIS [None]
  - CYSTITIS [None]
